FAERS Safety Report 4492991-8 (Version None)
Quarter: 2004Q4

REPORT INFORMATION
  Report Type: 
  Country: None (occurrence: None)
  Receive Date: 20041025
  Receipt Date: 20040809
  Transmission Date: 20050328
  Serious: Yes (Hospitalization)
  Sender: FDA-Public Use
  Company Number: CART-10363

PATIENT
  Age: 41 Year
  Sex: Female

DRUGS (1)
  1. CARTICEL [Suspect]
     Indication: BONE DISORDER
     Dosage: 1 NA ONCE IS
     Route: 035
     Dates: start: 20040721, end: 20040721

REACTIONS (1)
  - ARTHRALGIA [None]
